FAERS Safety Report 10553400 (Version 1)
Quarter: 2014Q4

REPORT INFORMATION
  Report Type: Spontaneous
  Country: FR (occurrence: FR)
  Receive Date: 20141030
  Receipt Date: 20141030
  Transmission Date: 20150529
  Serious: Yes (Hospitalization)
  Sender: FDA-Public Use
  Company Number: FR-BRISTOL-MYERS SQUIBB COMPANY-21510847

PATIENT
  Age: 82 Year
  Sex: Female

DRUGS (7)
  1. LASILIX [Concomitant]
     Active Substance: FUROSEMIDE
  2. EUPRESSYL [Concomitant]
     Active Substance: URAPIDIL
  3. INEXIUM [Concomitant]
     Active Substance: ESOMEPRAZOLE
  4. ZOLPIDEM [Concomitant]
     Active Substance: ZOLPIDEM\ZOLPIDEM TARTRATE
  5. PREVISCAN [Interacting]
     Active Substance: FLUINDIONE
     Route: 048
     Dates: end: 20140825
  6. SPRYCEL [Suspect]
     Active Substance: DASATINIB
     Indication: CHRONIC MYELOID LEUKAEMIA
     Route: 048
     Dates: start: 201402
  7. TAHOR [Concomitant]
     Active Substance: ATORVASTATIN CALCIUM

REACTIONS (6)
  - Anaemia [Recovered/Resolved]
  - Large intestinal ulcer [Unknown]
  - Melaena [Recovered/Resolved]
  - Asthenia [Recovered/Resolved]
  - Drug interaction [Unknown]
  - Rectal haemorrhage [Recovered/Resolved]

NARRATIVE: CASE EVENT DATE: 2014
